FAERS Safety Report 11485948 (Version 1)
Quarter: 2015Q3

REPORT INFORMATION
  Report Type: Spontaneous
  Country: CH (occurrence: CH)
  Receive Date: 20150909
  Receipt Date: 20150909
  Transmission Date: 20151125
  Serious: Yes (Other)
  Sender: FDA-Public Use
  Company Number: CH-DEP_12600_2015

PATIENT
  Sex: Female

DRUGS (2)
  1. PALEXIA [Suspect]
     Active Substance: TAPENTADOL HYDROCHLORIDE
     Indication: SCIATICA
     Dates: start: 201410
  2. PALEXIA [Suspect]
     Active Substance: TAPENTADOL HYDROCHLORIDE

REACTIONS (3)
  - Urticaria chronic [Not Recovered/Not Resolved]
  - Laryngeal oedema [None]
  - Face oedema [Recovered/Resolved]

NARRATIVE: CASE EVENT DATE: 201503
